FAERS Safety Report 5349573-5 (Version None)
Quarter: 2007Q2

REPORT INFORMATION
  Report Type: 
  Country: None (occurrence: None)
  Receive Date: 20070508
  Receipt Date: 20061213
  Transmission Date: 20071010
  Serious: Yes (Other)
  Sender: FDA-Public Use
  Company Number: 475875

PATIENT

DRUGS (1)
  1. NAPROXEN [Suspect]
     Indication: DRUG USE FOR UNKNOWN INDICATION
     Dosage: 500 MG 2 PER DAY ORAL
     Route: 048

REACTIONS (1)
  - GASTROINTESTINAL ULCER [None]
